FAERS Safety Report 18868179 (Version 5)
Quarter: 2021Q3

REPORT INFORMATION
  Report Type: Report from Study
  Country: US (occurrence: US)
  Receive Date: 20210209
  Receipt Date: 20210823
  Transmission Date: 20211014
  Serious: No
  Sender: FDA-Public Use
  Company Number: NVSC2021US030423

PATIENT
  Age: 33 Year
  Sex: Female

DRUGS (1)
  1. MAYZENT [Suspect]
     Active Substance: SIPONIMOD
     Indication: PRODUCT USED FOR UNKNOWN INDICATION
     Dosage: 0.5 MG (CAPSULE)
     Route: 048
     Dates: start: 20210207

REACTIONS (6)
  - Fine motor skill dysfunction [Unknown]
  - Chromaturia [Unknown]
  - Oedema peripheral [Unknown]
  - Somnolence [Unknown]
  - Arthropathy [Unknown]
  - Oropharyngeal discomfort [Unknown]

NARRATIVE: CASE EVENT DATE: 20210207
